FAERS Safety Report 6206035-0 (Version None)
Quarter: 2009Q2

REPORT INFORMATION
  Report Type: 
  Country: None (occurrence: None)
  Receive Date: 20090528
  Receipt Date: 20090522
  Transmission Date: 20091009
  Serious: Yes (Other)
  Sender: FDA-Public Use
  Company Number: US-ELI_LILLY_AND_COMPANY-US200905004608

PATIENT
  Sex: Male

DRUGS (1)
  1. HUMALOG MIX 75/25 [Suspect]

REACTIONS (8)
  - ALTERED VISUAL DEPTH PERCEPTION [None]
  - BLINDNESS UNILATERAL [None]
  - CATARACT [None]
  - DIPLOPIA [None]
  - EYE HAEMORRHAGE [None]
  - FOREIGN BODY TRAUMA [None]
  - HYPERMETROPIA [None]
  - MYOPIA [None]
